FAERS Safety Report 6369606-7 (Version None)
Quarter: 2009Q3

REPORT INFORMATION
  Report Type: 
  Country: None (occurrence: None)
  Receive Date: 20090923
  Receipt Date: 20090915
  Transmission Date: 20100115
  Serious: Yes (Other)
  Sender: FDA-Public Use
  Company Number: PHHO2009CA11341

PATIENT
  Sex: Male
  Weight: 79.4 kg

DRUGS (5)
  1. RAD 666 RAD+TAB [Suspect]
     Indication: LIVER TRANSPLANT
     Dosage: 1 MF DAILY
     Route: 048
     Dates: start: 20090805
  2. TACROLIMUS COMP-TAC+ [Suspect]
     Indication: LIVER TRANSPLANT
     Dosage: 3 MG DAILY
     Route: 048
     Dates: start: 20090707
  3. CILAZAPRIL [Suspect]
  4. PARIET [Concomitant]
  5. PREDNISOLONE [Concomitant]

REACTIONS (2)
  - MYODESOPSIA [None]
  - RETINAL DETACHMENT [None]
